FAERS Safety Report 9551104 (Version 3)
Quarter: 2014Q1

REPORT INFORMATION
  Report Type: Spontaneous
  Country: US (occurrence: US)
  Receive Date: 20130925
  Receipt Date: 20140321
  Transmission Date: 20141002
  Serious: Yes (Hospitalization)
  Sender: FDA-Public Use
  Company Number: US-BIOGENIDEC-2013BI090466

PATIENT
  Age: 64 Year
  Sex: Male

DRUGS (10)
  1. TYSABRI [Suspect]
     Indication: MULTIPLE SCLEROSIS
     Route: 042
     Dates: start: 20120130, end: 20130424
  2. TYSABRI [Suspect]
     Indication: MULTIPLE SCLEROSIS
     Route: 042
     Dates: start: 20070611, end: 20080923
  3. SIMVASTATIN [Concomitant]
  4. LORATADINE [Concomitant]
  5. OMEPRAZOLE [Concomitant]
  6. NITROGLYCERIN [Concomitant]
     Indication: MYOCARDIAL INFARCTION
  7. METOPROLOL [Concomitant]
  8. DOCUSATE [Concomitant]
     Indication: CONSTIPATION
  9. TIZANIDINE [Concomitant]
  10. PLAVIX [Concomitant]
     Indication: ISCHAEMIC HEART DISEASE PROPHYLAXIS

REACTIONS (2)
  - Gastrointestinal carcinoma [Not Recovered/Not Resolved]
  - Renal cancer [Not Recovered/Not Resolved]
